FAERS Safety Report 20088438 (Version 2)
Quarter: 2022Q1

REPORT INFORMATION
  Report Type: Spontaneous
  Country: US (occurrence: US)
  Receive Date: 20211118
  Receipt Date: 20220106
  Transmission Date: 20220424
  Serious: Yes (Other)
  Sender: FDA-Public Use
  Company Number: US-ENDO PHARMACEUTICALS INC-2021-012969

PATIENT
  Sex: Male

DRUGS (14)
  1. XIAFLEX [Suspect]
     Active Substance: COLLAGENASE CLOSTRIDIUM HISTOLYTICUM
     Indication: Peyronie^s disease
     Dosage: UNK, UNKNOWN (CYCLE ONE, INJECTION ONE)
     Route: 065
     Dates: start: 20201207
  2. XIAFLEX [Suspect]
     Active Substance: COLLAGENASE CLOSTRIDIUM HISTOLYTICUM
     Dosage: UNK, UNKNOWN (CYCLE ONE, INJECTION TWO)
     Route: 065
     Dates: start: 20201210
  3. XIAFLEX [Suspect]
     Active Substance: COLLAGENASE CLOSTRIDIUM HISTOLYTICUM
     Dosage: UNK, UNKNOWN (CYCLE TWO, INJECTION ONE)
     Route: 065
     Dates: start: 20210125
  4. XIAFLEX [Suspect]
     Active Substance: COLLAGENASE CLOSTRIDIUM HISTOLYTICUM
     Dosage: UNK, UNKNOWN (CYCLE TWO, INJECTION TWO)
     Route: 065
     Dates: start: 20210128
  5. XIAFLEX [Suspect]
     Active Substance: COLLAGENASE CLOSTRIDIUM HISTOLYTICUM
     Dosage: UNK, UNKNOWN (CYCLE THREE, INJECTION ONE)
     Route: 065
     Dates: start: 20210315
  6. XIAFLEX [Suspect]
     Active Substance: COLLAGENASE CLOSTRIDIUM HISTOLYTICUM
     Dosage: UNK, UNKNOWN (CYCLE THREE, INJECTION TWO)
     Route: 065
     Dates: start: 20210318
  7. XIAFLEX [Suspect]
     Active Substance: COLLAGENASE CLOSTRIDIUM HISTOLYTICUM
     Dosage: UNK, UNKNOWN (CYCLE FOUR, INJECTION ONE)
     Route: 065
     Dates: start: 20210503
  8. XIAFLEX [Suspect]
     Active Substance: COLLAGENASE CLOSTRIDIUM HISTOLYTICUM
     Dosage: UNK, UNKNOWN (CYCLE FOUR, INJECTION TWO)
     Route: 065
     Dates: start: 20210506
  9. XIAFLEX [Suspect]
     Active Substance: COLLAGENASE CLOSTRIDIUM HISTOLYTICUM
     Dosage: UNK, UNKNOWN (CYCLE FIVE, INJECTION ONE)
     Route: 065
     Dates: start: 20210809
  10. XIAFLEX [Suspect]
     Active Substance: COLLAGENASE CLOSTRIDIUM HISTOLYTICUM
     Dosage: UNK, UNKNOWN (CYCLE FIVE, INJECTION TWO)
     Route: 065
     Dates: start: 20210812
  11. XIAFLEX [Suspect]
     Active Substance: COLLAGENASE CLOSTRIDIUM HISTOLYTICUM
     Dosage: UNK, UNKNOWN (CYCLE SIX, INJECTION ONE)
     Route: 065
     Dates: start: 20210920
  12. XIAFLEX [Suspect]
     Active Substance: COLLAGENASE CLOSTRIDIUM HISTOLYTICUM
     Dosage: UNK, UNKNOWN (CYCLE SIX, INJECTION TWO)
     Route: 065
     Dates: start: 20210923
  13. XIAFLEX [Suspect]
     Active Substance: COLLAGENASE CLOSTRIDIUM HISTOLYTICUM
     Dosage: UNK, UNKNOWN (CYCLE SEVEN, INJECTION ONE)
     Route: 065
     Dates: start: 20211101
  14. XIAFLEX [Suspect]
     Active Substance: COLLAGENASE CLOSTRIDIUM HISTOLYTICUM
     Dosage: UNK, UNKNOWN (CYCLE SEVEN, INJECTION TWO)
     Route: 065
     Dates: start: 20211104

REACTIONS (3)
  - Chorioretinopathy [Unknown]
  - Off label use [Unknown]
  - Therapeutic product effect incomplete [Unknown]

NARRATIVE: CASE EVENT DATE: 20210101
